FAERS Safety Report 8420406-3 (Version None)
Quarter: 2012Q2

REPORT INFORMATION
  Report Type: 
  Country: None (occurrence: None)
  Receive Date: 20120607
  Receipt Date: 20120605
  Transmission Date: 20120825
  Serious: Yes (Death, Hospitalization)
  Sender: FDA-Public Use
  Company Number: US-MERCK-1206USA01045

PATIENT
  Sex: Male

DRUGS (4)
  1. PROPRANOLOL HCL [Suspect]
     Route: 065
  2. CLONIDINE [Suspect]
     Route: 065
  3. AMLODIPINE [Suspect]
     Route: 065
  4. HYDRODIURIL [Suspect]
     Indication: HYPERTENSION
     Route: 048

REACTIONS (1)
  - DRUG INEFFECTIVE [None]
